FAERS Safety Report 12101087 (Version 5)
Quarter: 2017Q2

REPORT INFORMATION
  Report Type: Report from Study
  Country: US (occurrence: US)
  Receive Date: 20160222
  Receipt Date: 20170616
  Transmission Date: 20170829
  Serious: Yes (Other)
  Sender: FDA-Public Use
  Company Number: US-B.I. PHARMACEUTICALS,INC./RIDGEFIELD-2015-BI-54660BP

PATIENT
  Sex: Female

DRUGS (3)
  1. OFEV [Suspect]
     Active Substance: NINTEDANIB
     Indication: IDIOPATHIC PULMONARY FIBROSIS
     Route: 048
     Dates: start: 20150509
  2. OFEV [Suspect]
     Active Substance: NINTEDANIB
     Route: 048
     Dates: start: 20150915
  3. OFEV [Suspect]
     Active Substance: NINTEDANIB
     Route: 048
     Dates: start: 20150907

REACTIONS (12)
  - Vomiting [Unknown]
  - Viral upper respiratory tract infection [Unknown]
  - Abdominal distension [Unknown]
  - Cough [Unknown]
  - Productive cough [Unknown]
  - Abdominal pain [Unknown]
  - Diarrhoea [Unknown]
  - Multiple sclerosis [Unknown]
  - Nausea [Unknown]
  - Bronchitis [Unknown]
  - Dyspnoea [Unknown]
  - Cystitis [Unknown]
